FAERS Safety Report 7347139-9 (Version None)
Quarter: 2011Q1

REPORT INFORMATION
  Report Type: 
  Country: None (occurrence: None)
  Receive Date: 20110311
  Receipt Date: 20110304
  Transmission Date: 20110831
  Serious: Yes (Hospitalization)
  Sender: FDA-Public Use
  Company Number: US-ALEXION PHARMACEUTICALS INC.-A201100191

PATIENT
  Sex: Female

DRUGS (8)
  1. PREDNISONE TAB [Concomitant]
     Dosage: 5 MG 3 TABLETS QD
  2. LOVENOX [Concomitant]
     Indication: ANTICOAGULANT THERAPY
     Dosage: 60 MG, BID
     Route: 058
  3. NEXIUM [Concomitant]
     Dosage: 40 MG, QD
  4. SOLIRIS [Suspect]
     Indication: PAROXYSMAL NOCTURNAL HAEMOGLOBINURIA
     Dosage: 900 MG, Q2W
     Route: 042
     Dates: end: 20110201
  5. LORTAB [Concomitant]
     Dosage: Q4H PRN
  6. FOLIC ACID [Concomitant]
     Dosage: 1 MG, QD
  7. FUROSEMIDE [Concomitant]
     Dosage: 40 MG, QD
  8. ALDACTONE [Concomitant]
     Dosage: 150 MG WITH BREAKFAST, UNK

REACTIONS (3)
  - ABDOMINAL HERNIA [None]
  - HYPOKALAEMIA [None]
  - PERITONITIS [None]
